FAERS Safety Report 13271673 (Version 2)
Quarter: 2017Q1

REPORT INFORMATION
  Report Type: Report from Study
  Country: US (occurrence: US)
  Receive Date: 20170227
  Receipt Date: 20170310
  Transmission Date: 20170428
  Serious: Yes (Hospitalization)
  Sender: FDA-Public Use
  Company Number: US-ACADIA PHARMACEUTICALS INC.-ACA-2017-002322

PATIENT
  Age: 78 Year
  Sex: Male

DRUGS (1)
  1. NUPLAZID [Suspect]
     Active Substance: PIMAVANSERIN TARTRATE
     Indication: PARKINSON^S DISEASE PSYCHOSIS
     Dosage: 51 MG, QD
     Route: 048
     Dates: start: 20161109

REACTIONS (2)
  - Nonspecific reaction [Not Recovered/Not Resolved]
  - Drug prescribing error [Unknown]

NARRATIVE: CASE EVENT DATE: 20161109
